FAERS Safety Report 13764197 (Version 1)
Quarter: 2017Q3

REPORT INFORMATION
  Report Type: Spontaneous
  Country: FR (occurrence: FR)
  Receive Date: 20170718
  Receipt Date: 20170718
  Transmission Date: 20171127
  Serious: Yes (Hospitalization, Other)
  Sender: FDA-Public Use
  Company Number: FR-PFIZER INC-2017306520

PATIENT
  Age: 78 Year
  Sex: Male

DRUGS (10)
  1. MOVICOL [Suspect]
     Active Substance: POLYETHYLENE GLYCOL 3350\POTASSIUM CHLORIDE\SODIUM BICARBONATE\SODIUM CHLORIDE
     Dosage: 2 DF, 1X/DAY
     Route: 048
  2. ALDACTONE [Suspect]
     Active Substance: SPIRONOLACTONE
     Dosage: 1 DF, 1X/DAY
  3. LANSOYL [Suspect]
     Active Substance: MINERAL OIL
     Dosage: 1 DF, 2X/DAY
     Route: 048
  4. MYCOSTATINE [Suspect]
     Active Substance: NYSTATIN
     Dosage: 1 DF, 3X/DAY
     Route: 048
  5. PAROXETINE HCL [Suspect]
     Active Substance: PAROXETINE HYDROCHLORIDE
     Dosage: 1 DF, 1X/DAY
     Route: 048
  6. BISOCE [Suspect]
     Active Substance: BISOPROLOL
     Dosage: 1 DF, 2X/DAY
     Route: 048
     Dates: end: 20170623
  7. LYSANXIA [Suspect]
     Active Substance: PRAZEPAM
     Dosage: 1 DF, 1X/DAY
  8. PYOSTACINE [Suspect]
     Active Substance: PRISTINAMYCIN
     Dosage: 2 DF, 3X/DAY
     Route: 048
  9. XATRAL [Suspect]
     Active Substance: ALFUZOSIN
     Dosage: 1 DF, 1X/DAY
     Route: 048
  10. XARELTO [Suspect]
     Active Substance: RIVAROXABAN
     Indication: ATRIAL FLUTTER
     Dosage: 20 MG, 1X/DAY
     Route: 048
     Dates: end: 20170623

REACTIONS (3)
  - Gastrointestinal haemorrhage [Recovered/Resolved]
  - Melaena [Recovered/Resolved]
  - Gastric ulcer [Unknown]

NARRATIVE: CASE EVENT DATE: 20170622
